FAERS Safety Report 12693050 (Version 2)
Quarter: 2016Q3

REPORT INFORMATION
  Report Type: Report from Study
  Country: US (occurrence: US)
  Receive Date: 20160829
  Receipt Date: 20160907
  Transmission Date: 20161109
  Serious: Yes (Death, Hospitalization, Other)
  Sender: FDA-Public Use
  Company Number: US-GILEAD-2016-0230315

PATIENT
  Age: 75 Year
  Sex: Male
  Weight: 80.27 kg

DRUGS (20)
  1. AMBRISENTAN [Suspect]
     Active Substance: AMBRISENTAN
     Indication: PULMONARY ARTERIAL HYPERTENSION
     Dosage: 10 MG, QD
     Route: 048
     Dates: start: 201408
  2. ATIVAN [Concomitant]
     Active Substance: LORAZEPAM
  3. NORCO [Concomitant]
     Active Substance: ACETAMINOPHEN\HYDROCODONE BITARTRATE
  4. ROXANOL [Concomitant]
     Active Substance: MORPHINE SULFATE
  5. METOPROLOL. [Concomitant]
     Active Substance: METOPROLOL
  6. SILDENAFIL. [Concomitant]
     Active Substance: SILDENAFIL
  7. ALBUTEROL                          /00139501/ [Concomitant]
     Active Substance: ALBUTEROL
  8. DULCOLAX (BISACODYL) [Concomitant]
     Active Substance: BISACODYL
  9. LIPITOR [Concomitant]
     Active Substance: ATORVASTATIN CALCIUM
  10. ZOFRAN [Concomitant]
     Active Substance: ONDANSETRON HYDROCHLORIDE
  11. SENNA                              /00142201/ [Concomitant]
     Active Substance: SENNA LEAF
  12. ATROPINE. [Concomitant]
     Active Substance: ATROPINE
  13. ZOLOFT [Concomitant]
     Active Substance: SERTRALINE HYDROCHLORIDE
  14. IPRATROPIUM [Concomitant]
     Active Substance: IPRATROPIUM
  15. FERROUS GLUCONATE [Concomitant]
     Active Substance: FERROUS GLUCONATE
  16. OMEPRAZOL                          /00661201/ [Concomitant]
     Active Substance: OMEPRAZOLE
  17. K-TAB [Concomitant]
     Active Substance: POTASSIUM CHLORIDE
  18. QUESTRAN [Concomitant]
     Active Substance: CHOLESTYRAMINE
  19. TYLENOL [Concomitant]
     Active Substance: ACETAMINOPHEN
  20. FUROSEMIDE. [Concomitant]
     Active Substance: FUROSEMIDE

REACTIONS (7)
  - Renal impairment [Unknown]
  - Dyspnoea [Unknown]
  - Death [Fatal]
  - Asthenia [Unknown]
  - Scrotal oedema [Unknown]
  - Hepatic function abnormal [Unknown]
  - Oedema peripheral [Unknown]

NARRATIVE: CASE EVENT DATE: 20160728
